FAERS Safety Report 9398099 (Version 1)
Quarter: 2013Q3

REPORT INFORMATION
  Report Type: Spontaneous
  Country: US (occurrence: US)
  Receive Date: 20130712
  Receipt Date: 20130712
  Transmission Date: 20140515
  Serious: Yes (Other)
  Sender: FDA-Public Use
  Company Number: US-GLAXOSMITHKLINE-A0982593A

PATIENT
  Age: 77 Year
  Sex: Female

DRUGS (5)
  1. FLOVENT [Suspect]
     Indication: ASTHMA
     Dosage: 110MCG TWICE PER DAY
     Route: 055
  2. FUROSEMIDE [Concomitant]
  3. AMLODIPINE [Concomitant]
  4. KCL [Concomitant]
  5. MULTIVITAMIN [Concomitant]

REACTIONS (2)
  - Asthma [Unknown]
  - Product quality issue [Unknown]
